FAERS Safety Report 22187858 (Version 1)
Quarter: 2023Q2

REPORT INFORMATION
  Report Type: Report from Study
  Country: EG (occurrence: EG)
  Receive Date: 20230408
  Receipt Date: 20230408
  Transmission Date: 20230721
  Serious: Yes (Other)
  Sender: FDA-Public Use
  Company Number: EG-002147023-NVSC2022EG215457

PATIENT
  Sex: Male

DRUGS (2)
  1. COSENTYX [Suspect]
     Active Substance: SECUKINUMAB
     Indication: Ankylosing spondylitis
     Dosage: 1 DOSAGE FORM, QW 150MG QW FOR A MONTH AS A LOADING DOSE)
     Route: 058
     Dates: start: 20220912
  2. COSENTYX [Suspect]
     Active Substance: SECUKINUMAB
     Dosage: 1 DOSAGE FORM, QMO (1 PREFILLED PEN OF COSENTYX ONCE MONTHLY FOR 9 MONTH AS A MAINTENANCE DOSE)
     Route: 058

REACTIONS (4)
  - Ankylosing spondylitis [Unknown]
  - Mobility decreased [Unknown]
  - Off label use [Unknown]
  - Drug ineffective [Unknown]
